FAERS Safety Report 5098514-7 (Version None)
Quarter: 2006Q3

REPORT INFORMATION
  Report Type: 
  Country: None (occurrence: None)
  Receive Date: 20060906
  Receipt Date: 20060210
  Transmission Date: 20061208
  Serious: No
  Sender: FDA-Public Use
  Company Number: US-GLAXOSMITHKLINE-A0593253A

PATIENT
  Age: 50 Year
  Sex: Female

DRUGS (8)
  1. REQUIP [Suspect]
     Indication: RESTLESS LEGS SYNDROME
     Dosage: .5MG PER DAY
     Route: 048
  2. CALCIUM GLUCONATE [Concomitant]
  3. HERBAL ENERGY COMPLEX [Concomitant]
     Route: 048
  4. BETA CAROTENE [Concomitant]
  5. HERBAL LIVER PILL [Concomitant]
     Route: 048
  6. HERBAL MEDICINE [Concomitant]
  7. VITAMIN B COMPLEX CAP [Concomitant]
  8. ESTROGENS SOL/INJ [Concomitant]

REACTIONS (4)
  - DIZZINESS [None]
  - MALAISE [None]
  - NAUSEA [None]
  - POOR QUALITY SLEEP [None]
